FAERS Safety Report 16597332 (Version 1)
Quarter: 2019Q3

REPORT INFORMATION
  Report Type: Spontaneous
  Country: US (occurrence: US)
  Receive Date: 20190718
  Receipt Date: 20190718
  Transmission Date: 20191004
  Serious: No
  Sender: FDA-Public Use
  Company Number: None

PATIENT
  Age: 30 Year
  Sex: Male
  Weight: 85.5 kg

DRUGS (1)
  1. NANOTEARS [Suspect]
     Active Substance: CYCLOSPORINE
     Indication: KERATOMILEUSIS

REACTIONS (1)
  - Product quality issue [None]
